FAERS Safety Report 9283675 (Version 5)
Quarter: 2013Q3

REPORT INFORMATION
  Report Type: Spontaneous
  Country: US (occurrence: US)
  Receive Date: 20130510
  Receipt Date: 20130819
  Transmission Date: 20140515
  Serious: Yes (Hospitalization)
  Sender: FDA-Public Use
  Company Number: US-GLAXOSMITHKLINE-A1019529A

PATIENT
  Age: 58 Year
  Sex: Female

DRUGS (1)
  1. FLOLAN [Suspect]
     Indication: MULTIPLE SCLEROSIS
     Dosage: 63NGKM CONTINUOUS
     Route: 042
     Dates: start: 20070524

REACTIONS (5)
  - Device related infection [Recovered/Resolved]
  - Renal failure [Recovered/Resolved]
  - Sepsis [Recovered/Resolved]
  - Adverse event [Recovered/Resolved]
  - Hyperaesthesia [Recovered/Resolved]
